FAERS Safety Report 13825102 (Version 2)
Quarter: 2017Q3

REPORT INFORMATION
  Report Type: Spontaneous
  Country: KR (occurrence: KR)
  Receive Date: 20170802
  Receipt Date: 20170912
  Transmission Date: 20171127
  Serious: Yes (Other)
  Sender: FDA-Public Use
  Company Number: KR-009507513-1704KOR002102

PATIENT
  Age: 52 Year
  Sex: Male
  Weight: 55.2 kg

DRUGS (30)
  1. ALOXI [Concomitant]
     Active Substance: PALONOSETRON HYDROCHLORIDE
     Indication: ANTIEMETIC SUPPORTIVE CARE
     Dosage: 0.25MG, ONCE
     Route: 042
     Dates: start: 20170307, end: 20170307
  2. LACTOBACILLUS HELVETICUS (+) LACTOBACILLUS RHAMNOSUS [Concomitant]
     Indication: PROPHYLAXIS AGAINST DIARRHOEA
     Dosage: 20 MG, QD
     Route: 048
     Dates: start: 20170209
  3. LAMINA G [Concomitant]
     Active Substance: SODIUM ALGINATE
     Indication: PROPHYLAXIS
     Dosage: 20 ML, TID
     Route: 048
     Dates: start: 20170203
  4. EMEND (FOSAPREPITANT DIMEGLUMINE) [Suspect]
     Active Substance: FOSAPREPITANT DIMEGLUMINE
     Dosage: 150 MG, ONCE
     Route: 042
     Dates: start: 20170314, end: 20170314
  5. EMEND (FOSAPREPITANT DIMEGLUMINE) [Suspect]
     Active Substance: FOSAPREPITANT DIMEGLUMINE
     Dosage: 150 MG, ONCE
     Route: 042
     Dates: start: 20170328, end: 20170328
  6. GEMCITABINE HYDROCHLORIDE. [Concomitant]
     Active Substance: GEMCITABINE HYDROCHLORIDE
     Indication: CHOLANGIOCARCINOMA
     Dosage: CYCLE 3, 1.57 G, ONCE
     Route: 042
     Dates: start: 20170307, end: 20170307
  7. NEXIUM [Concomitant]
     Active Substance: ESOMEPRAZOLE MAGNESIUM
     Indication: PROPHYLAXIS
     Dosage: 1 TABLET (20 MG), QD
     Route: 048
     Dates: start: 20170214
  8. DEXAMETHASONE SODIUM PHOSPHATE. [Concomitant]
     Active Substance: DEXAMETHASONE SODIUM PHOSPHATE
     Indication: ANTIEMETIC SUPPORTIVE CARE
     Dosage: 12 MG, ONCE, STRENGTH 5MG/ML
     Route: 042
     Dates: start: 20170307, end: 20170307
  9. LASIX [Concomitant]
     Active Substance: FUROSEMIDE
     Dosage: 20 MG, ONCE, STRENGTH 20MG/2ML
     Route: 042
     Dates: start: 20170314, end: 20170314
  10. LASIX [Concomitant]
     Active Substance: FUROSEMIDE
     Dosage: 20 MG, ONCE, STRENGTH 20MG/2ML
     Route: 042
     Dates: start: 20170328, end: 20170328
  11. DEXILANT [Concomitant]
     Active Substance: DEXLANSOPRAZOLE
     Indication: PROPHYLAXIS
     Dosage: 1 CAPSULE (30 MG), BID
     Route: 048
     Dates: start: 20170203
  12. EMEND (FOSAPREPITANT DIMEGLUMINE) [Suspect]
     Active Substance: FOSAPREPITANT DIMEGLUMINE
     Indication: PROPHYLAXIS OF NAUSEA AND VOMITING
     Dosage: 150 MG, ONCE
     Route: 042
     Dates: start: 20170215, end: 20170215
  13. DEXAMETHASONE SODIUM PHOSPHATE. [Concomitant]
     Active Substance: DEXAMETHASONE SODIUM PHOSPHATE
     Dosage: 12 MG, ONCE, STRENGTH 5MG/ML
     Route: 042
     Dates: start: 20170419, end: 20170419
  14. ALOXI [Concomitant]
     Active Substance: PALONOSETRON HYDROCHLORIDE
     Dosage: 0.25 MG, ONCE
     Route: 042
     Dates: start: 20170419, end: 20170419
  15. MEGACE F [Concomitant]
     Indication: PROPHYLAXIS
     Dosage: 5 ML, QD
     Route: 048
     Dates: start: 20170203
  16. CISPLAN [Concomitant]
     Active Substance: CISPLATIN
     Dosage: CYCLE 1, 128.8 MG, ONCE, STRENGTH 10MG/20ML
     Route: 042
     Dates: start: 20170328, end: 20170328
  17. ALOXI [Concomitant]
     Active Substance: PALONOSETRON HYDROCHLORIDE
     Dosage: 0.25MG, ONCE
     Route: 042
     Dates: start: 20170314, end: 20170314
  18. EMEND (FOSAPREPITANT DIMEGLUMINE) [Suspect]
     Active Substance: FOSAPREPITANT DIMEGLUMINE
     Dosage: 150 MG, ONCE
     Route: 042
     Dates: start: 20170419, end: 20170419
  19. DEXAMETHASONE SODIUM PHOSPHATE. [Concomitant]
     Active Substance: DEXAMETHASONE SODIUM PHOSPHATE
     Dosage: 12 MG, ONCE, STRENGTH 5MG/ML
     Route: 042
     Dates: start: 20170314, end: 20170314
  20. ALOXI [Concomitant]
     Active Substance: PALONOSETRON HYDROCHLORIDE
     Dosage: 0.25MG, ONCE
     Route: 042
     Dates: start: 20170328, end: 20170328
  21. LASIX [Concomitant]
     Active Substance: FUROSEMIDE
     Indication: PROPHYLAXIS
     Dosage: 20 MG, ONCE, STRENGTH 20MG/2ML
     Route: 042
     Dates: start: 20170307, end: 20170307
  22. EMEND (FOSAPREPITANT DIMEGLUMINE) [Suspect]
     Active Substance: FOSAPREPITANT DIMEGLUMINE
     Dosage: 150 MG, ONCE
     Route: 042
     Dates: start: 20170222, end: 20170222
  23. CISPLAN [Concomitant]
     Active Substance: CISPLATIN
     Indication: CHOLANGIOCARCINOMA
     Dosage: CYCLE 3, 39 MG, ONCE, STRENGTH 10MG/20ML
     Route: 042
     Dates: start: 20170307, end: 20170307
  24. CISPLAN [Concomitant]
     Active Substance: CISPLATIN
     Dosage: CYCLE 4, 40.5 MG, ONCE, STRENGTH 10MG/20ML
     Route: 042
     Dates: start: 20170314, end: 20170314
  25. GEMCITABINE HYDROCHLORIDE. [Concomitant]
     Active Substance: GEMCITABINE HYDROCHLORIDE
     Indication: CHEMOTHERAPY
     Dosage: CYCLE 4, 1.62 G, ONCE
     Route: 042
     Dates: start: 20170314, end: 20170314
  26. DEXAMETHASONE SODIUM PHOSPHATE. [Concomitant]
     Active Substance: DEXAMETHASONE SODIUM PHOSPHATE
     Dosage: 12 MG, ONCE, STRENGTH 5MG/ML
     Route: 042
     Dates: start: 20170328, end: 20170328
  27. GASMOTIN [Concomitant]
     Active Substance: MOSAPRIDE CITRATE
     Indication: PROPHYLAXIS
     Dosage: 1 TABLET (5 MG), BID
     Route: 048
     Dates: start: 20170203
  28. EMEND (FOSAPREPITANT DIMEGLUMINE) [Suspect]
     Active Substance: FOSAPREPITANT DIMEGLUMINE
     Dosage: 150 MG, ONCE
     Route: 042
     Dates: start: 20170307, end: 20170307
  29. CISPLAN [Concomitant]
     Active Substance: CISPLATIN
     Dosage: CYCLE 2, 128.8MG, ONCE, STRENGTH 10MG/20ML
     Dates: start: 20170419, end: 20170419
  30. ALBIS [Concomitant]
     Active Substance: BISMUTH SUBCITRATE\RANITIDINE HYDROCHLORIDE\SUCRALFATE
     Indication: PROPHYLAXIS
     Dosage: 1 TABLET, QD
     Route: 048
     Dates: start: 20170209

REACTIONS (2)
  - Nausea [Recovered/Resolved]
  - Nausea [Recovered/Resolved]

NARRATIVE: CASE EVENT DATE: 20170309
